FAERS Safety Report 13351696 (Version 1)
Quarter: 2017Q1

REPORT INFORMATION
  Report Type: Spontaneous
  Country: US (occurrence: US)
  Receive Date: 20170320
  Receipt Date: 20170320
  Transmission Date: 20170429
  Serious: Yes (Hospitalization, Disabling)
  Sender: FDA-Public Use
  Company Number: None

PATIENT
  Age: 62 Year
  Sex: Female
  Weight: 61.29 kg

DRUGS (13)
  1. VITAMIN E [Concomitant]
     Active Substance: .ALPHA.-TOCOPHEROL
  2. CALCIUM [Concomitant]
     Active Substance: CALCIUM
  3. VITAMIN C [Concomitant]
     Active Substance: ASCORBIC ACID
  4. BIOTIN [Concomitant]
     Active Substance: BIOTIN
  5. AMBIEN [Suspect]
     Active Substance: ZOLPIDEM TARTRATE
  6. VALIUM [Concomitant]
     Active Substance: DIAZEPAM
  7. PROBIOTIC [Concomitant]
     Active Substance: PROBIOTICS NOS
  8. LETROZOLE. [Suspect]
     Active Substance: LETROZOLE
     Indication: OESTROGEN RECEPTOR POSITIVE BREAST CANCER
     Dosage: QUANTITY:1X DAILY MORNING?
     Route: 048
     Dates: start: 20160210, end: 20170206
  9. ARMOUR THYROID [Concomitant]
     Active Substance: THYROID, PORCINE
  10. LOVAZA [Concomitant]
     Active Substance: OMEGA-3-ACID ETHYL ESTERS
  11. B-12 SHOT [Concomitant]
  12. VITAMIN D3 [Concomitant]
     Active Substance: CHOLECALCIFEROL
  13. VITAMIN A [Concomitant]
     Active Substance: VITAMIN A

REACTIONS (2)
  - Bladder prolapse [None]
  - Vaginal haemorrhage [None]

NARRATIVE: CASE EVENT DATE: 20170205
